FAERS Safety Report 17685932 (Version 4)
Quarter: 2020Q3

REPORT INFORMATION
  Report Type: Report from Study
  Country: US (occurrence: US)
  Receive Date: 20200420
  Receipt Date: 20200706
  Transmission Date: 20201102
  Serious: No
  Sender: FDA-Public Use
  Company Number: US-BIOVITRUM-2020US1685

PATIENT
  Age: 42 Year
  Sex: Male

DRUGS (8)
  1. ZITHROMAX [Concomitant]
     Active Substance: AZITHROMYCIN DIHYDRATE
  2. VRAYLAR [Concomitant]
     Active Substance: CARIPRAZINE
  3. CLONAZEPAM. [Concomitant]
     Active Substance: CLONAZEPAM
  4. ROPINOROLE [Concomitant]
     Active Substance: ROPINIROLE
  5. KINERET [Suspect]
     Active Substance: ANAKINRA
     Indication: STILL^S DISEASE
     Route: 058
     Dates: start: 20200317
  6. MARIJUANA [Concomitant]
     Active Substance: CANNABIS SATIVA SUBSP. INDICA TOP
  7. OXYCODONE [Concomitant]
     Active Substance: OXYCODONE
  8. ZOFRAN [Concomitant]
     Active Substance: ONDANSETRON HYDROCHLORIDE

REACTIONS (14)
  - Pain [Unknown]
  - Off label use [Not Recovered/Not Resolved]
  - Pyrexia [Unknown]
  - Injection site reaction [Unknown]
  - Pharyngitis streptococcal [Unknown]
  - Feeling hot [Unknown]
  - Injection site urticaria [Unknown]
  - Injection site erythema [Unknown]
  - Anxiety [Unknown]
  - Myalgia [Unknown]
  - Lethargy [Unknown]
  - Restless legs syndrome [Unknown]
  - Therapeutic response unexpected [Recovered/Resolved]
  - Product dose omission issue [Unknown]

NARRATIVE: CASE EVENT DATE: 20200317
